FAERS Safety Report 8405877-0 (Version None)
Quarter: 2012Q2

REPORT INFORMATION
  Report Type: 
  Country: None (occurrence: None)
  Receive Date: 20120529
  Receipt Date: 20051227
  Transmission Date: 20120825
  Serious: Yes (Hospitalization)
  Sender: FDA-Public Use
  Company Number: 15691-USA-05-3283

PATIENT
  Age: 71 Year
  Sex: Male

DRUGS (9)
  1. CARVEDILOL [Concomitant]
  2. SIMVASTATIN [Concomitant]
  3. SPIRONOLACTONE [Concomitant]
  4. CHLORTHALIDONE [Concomitant]
  5. TOLVAPTAN (TOLVAPTAN(V4.1)) 30MG [Suspect]
     Indication: CARDIAC FAILURE CONGESTIVE
     Dosage: 30 MG, QD, ORAL
     Route: 048
     Dates: start: 20060109
  6. TOLVAPTAN (TOLVAPTAN(V4.1)) 30MG [Suspect]
     Indication: CARDIAC FAILURE CONGESTIVE
     Dosage: 30 MG, QD, ORAL
     Route: 048
     Dates: start: 20050918, end: 20060108
  7. FUROSEMIDE [Concomitant]
  8. ALLOPURINOL [Concomitant]
  9. RAMIPRIL [Concomitant]

REACTIONS (2)
  - RENAL FAILURE ACUTE [None]
  - URINARY TRACT INFECTION [None]
